FAERS Safety Report 7861156-1 (Version None)
Quarter: 2011Q4

REPORT INFORMATION
  Report Type: 
  Country: None (occurrence: None)
  Receive Date: 20111027
  Receipt Date: 20111020
  Transmission Date: 20120403
  Serious: Yes (Hospitalization)
  Sender: FDA-Public Use
  Company Number: CHPA2011US14568

PATIENT
  Sex: Male

DRUGS (2)
  1. RISPERDAL [Concomitant]
     Dosage: UNK, UNK
  2. TRANSDERM SCOP [Suspect]
     Indication: SALIVARY HYPERSECRETION
     Dosage: 1 DF, Q72H
     Route: 062
     Dates: start: 20090901

REACTIONS (5)
  - THERAPEUTIC RESPONSE UNEXPECTED [None]
  - DRUG WITHDRAWAL SYNDROME [None]
  - VOMITING [None]
  - PNEUMONIA ASPIRATION [None]
  - WRONG TECHNIQUE IN DRUG USAGE PROCESS [None]
